FAERS Safety Report 16445929 (Version 1)
Quarter: 2019Q2

REPORT INFORMATION
  Report Type: Report from Study
  Country: US (occurrence: US)
  Receive Date: 20190618
  Receipt Date: 20190618
  Transmission Date: 20190711
  Serious: Yes (Death)
  Sender: FDA-Public Use
  Company Number: US-TAIHO ONCOLOGY  INC-EU-2019-01738

PATIENT
  Age: 88 Year
  Sex: Male

DRUGS (4)
  1. ASPIRIN. [Concomitant]
     Active Substance: ASPIRIN
     Dosage: NI
  2. LONSURF [Suspect]
     Active Substance: TIPIRACIL HYDROCHLORIDE\TRIFLURIDINE
     Indication: APPENDIX CANCER
     Dosage: CURRENT CYCLE UNKNOWN.
     Route: 048
     Dates: start: 20190116, end: 2019
  3. BACLOFEN. [Concomitant]
     Active Substance: BACLOFEN
     Dosage: NI
  4. TYLENOL [Concomitant]
     Active Substance: ACETAMINOPHEN
     Dosage: NI

REACTIONS (3)
  - White blood cell count decreased [Not Recovered/Not Resolved]
  - Disease progression [Unknown]
  - Death [Fatal]

NARRATIVE: CASE EVENT DATE: 2019
